FAERS Safety Report 17481232 (Version 1)
Quarter: 2020Q1

REPORT INFORMATION
  Report Type: Spontaneous
  Country: US (occurrence: US)
  Receive Date: 20200302
  Receipt Date: 20200302
  Transmission Date: 20200409
  Serious: Yes (Other)
  Sender: FDA-Public Use
  Company Number: US-ROCHE-2555813

PATIENT
  Sex: Female
  Weight: 59.02 kg

DRUGS (5)
  1. CALAN [Concomitant]
     Active Substance: VERAPAMIL HYDROCHLORIDE
     Indication: HYPERTENSION
     Dosage: STARTED APPROXIMATELY 10-12 YEARS AGO
     Route: 048
  2. COD LIVER OIL [Concomitant]
     Active Substance: COD LIVER OIL
     Indication: DRY EYE
     Route: 048
     Dates: start: 2015
  3. LUCENTIS [Suspect]
     Active Substance: RANIBIZUMAB
     Indication: MACULAR DEGENERATION
     Route: 031
     Dates: start: 2013
  4. ELIQUIS [Concomitant]
     Active Substance: APIXABAN
     Indication: ATRIAL FIBRILLATION
     Dosage: YES
     Route: 048
     Dates: start: 2017
  5. SYNTHROID [Concomitant]
     Active Substance: LEVOTHYROXINE SODIUM
     Route: 048
     Dates: start: 2015

REACTIONS (5)
  - Atrial fibrillation [Not Recovered/Not Resolved]
  - Visual impairment [Unknown]
  - Dry eye [Not Recovered/Not Resolved]
  - Pneumonia [Recovered/Resolved]
  - Body height decreased [Unknown]

NARRATIVE: CASE EVENT DATE: 2015
